FAERS Safety Report 17651492 (Version 1)
Quarter: 2020Q2

REPORT INFORMATION
  Report Type: Spontaneous
  Country: US (occurrence: US)
  Receive Date: 20200409
  Receipt Date: 20200409
  Transmission Date: 20200713
  Serious: Yes (Hospitalization)
  Sender: FDA-Public Use
  Company Number: US-STRIDES ARCOLAB LIMITED-2020SP004481

PATIENT
  Age: 23 Year

DRUGS (16)
  1. CLOZAPINE. [Interacting]
     Active Substance: CLOZAPINE
     Dosage: 87.5 MILLIGRAM, SLOW TITRATION
     Route: 065
  2. LORAZEPAM. [Interacting]
     Active Substance: LORAZEPAM
     Indication: ANXIETY
     Dosage: 0.5 MILLIGRAM, TWICE DAILY (AS NECESSARY)
     Route: 065
  3. FLUVOXAMINE [Interacting]
     Active Substance: FLUVOXAMINE
     Indication: OBSESSIVE THOUGHTS
     Dosage: 100 MILLIGRAM, AT BED TIME
     Route: 065
  4. VERAPAMIL [Interacting]
     Active Substance: VERAPAMIL HYDROCHLORIDE
     Indication: TACHYCARDIA
     Dosage: 360 MILLIGRAM, AT BED TIME
     Route: 065
  5. CLOZAPINE. [Interacting]
     Active Substance: CLOZAPINE
     Indication: ANXIETY
     Dosage: 6.25 MILLIGRAM, SLOW TITRATION
     Route: 065
  6. FAMOTIDINE. [Interacting]
     Active Substance: FAMOTIDINE
     Indication: GASTROOESOPHAGEAL REFLUX DISEASE
     Dosage: 20 MILLIGRAM, EVERY 12 HRS
     Route: 065
  7. MIRTAZAPINE. [Interacting]
     Active Substance: MIRTAZAPINE
     Indication: DEPRESSION
     Dosage: 60 MILLIGRAM, AT BED TIME
     Route: 065
  8. QUETIAPINE. [Interacting]
     Active Substance: QUETIAPINE
     Indication: SELF-INJURIOUS IDEATION
     Dosage: 12.5 MILLIGRAM, NIGHTLY (AS NEEDED)
     Route: 065
  9. FLUDROCORTISONE [Interacting]
     Active Substance: FLUDROCORTISONE
     Indication: HYPOTENSION
     Dosage: 0.2 MILLIGRAM, BID
     Route: 065
  10. BUSPIRONE HYDROCHLORIDE. [Interacting]
     Active Substance: BUSPIRONE HYDROCHLORIDE
     Indication: ANXIETY
     Dosage: 15 MILLIGRAM, EVERY 6 HRS
     Route: 065
  11. GABAPENTIN. [Interacting]
     Active Substance: GABAPENTIN
     Dosage: UNK, TAPERED OFF
     Route: 065
  12. LURASIDONE [Interacting]
     Active Substance: LURASIDONE
     Indication: FLASHBACK
     Dosage: 40 MILLIGRAM, AT BED TIME
     Route: 065
  13. CLOZAPINE. [Interacting]
     Active Substance: CLOZAPINE
     Dosage: 162.5 MILLIGRAM
     Route: 065
  14. GABAPENTIN. [Suspect]
     Active Substance: GABAPENTIN
     Indication: ANXIETY
     Dosage: 600 MILLIGRAM, EVERY 6 HRS
     Route: 065
  15. TESTOSTERONE. [Interacting]
     Active Substance: TESTOSTERONE
     Indication: TRANSGENDER HORMONAL THERAPY
     Dosage: UNK, ONCE A WEEK
  16. CLOZAPINE. [Interacting]
     Active Substance: CLOZAPINE
     Dosage: 50 MILLIGRAM
     Route: 065

REACTIONS (4)
  - Periorbital oedema [Recovered/Resolved]
  - Drug interaction [Unknown]
  - Off label use [Unknown]
  - Swelling of eyelid [Recovered/Resolved]
